FAERS Safety Report 8846130 (Version 1)
Quarter: 2012Q4

REPORT INFORMATION
  Report Type: 
  Country: BR (occurrence: BR)
  Receive Date: 20121017
  Receipt Date: 20121017
  Transmission Date: 20130627
  Serious: Yes (Other)
  Sender: FDA-Public Use
  Company Number: BR-AMGEN-BRASP2012065768

PATIENT
  Age: 72 Year
  Sex: Female
  Weight: 55 kg

DRUGS (3)
  1. ENBREL [Suspect]
     Indication: RHEUMATOID ARTHRITIS
     Dosage: 50 mg, once weekly
     Route: 058
     Dates: start: 20101001, end: 201205
  2. METHOTREXATE [Concomitant]
     Dosage: 4 tablets strength 2.5 mg (10 mg), 2x/day
     Route: 048
  3. METICORTEN [Concomitant]
     Dosage: 0.5 mg, 1 tablet 1x/day
     Route: 048

REACTIONS (5)
  - Femur fracture [Unknown]
  - Haemorrhage [Unknown]
  - Hip arthroplasty [Unknown]
  - Hip surgery [Unknown]
  - Drug ineffective [Unknown]
